FAERS Safety Report 9345229 (Version 1)
Quarter: 2013Q2

REPORT INFORMATION
  Report Type: Spontaneous
  Country: US (occurrence: US)
  Receive Date: 20130612
  Receipt Date: 20130612
  Transmission Date: 20140414
  Serious: No
  Sender: FDA-Public Use
  Company Number: US-TEVA-409357USA

PATIENT
  Age: 59 Year
  Sex: Female
  Weight: 113.5 kg

DRUGS (6)
  1. AZILECT [Suspect]
     Indication: PARKINSON^S DISEASE
     Dates: start: 201303
  2. TRIAMTERENE [Concomitant]
     Indication: FLUID RETENTION
     Dosage: 37 MICROGRAM DAILY;
  3. BENICAR [Concomitant]
     Indication: HYPERTENSION
     Dosage: 40 MILLIGRAM DAILY;
  4. LEVOTHYROXINE [Concomitant]
     Indication: THYROID DISORDER
  5. ALENDRONATE SODIUM [Concomitant]
     Indication: BONE DISORDER
     Route: 048
  6. UNKNOWN [Concomitant]
     Indication: GASTROOESOPHAGEAL REFLUX DISEASE

REACTIONS (1)
  - Muscle spasms [Not Recovered/Not Resolved]
